FAERS Safety Report 19360651 (Version 2)
Quarter: 2021Q3

REPORT INFORMATION
  Report Type: Other
  Country: FR (occurrence: FR)
  Receive Date: 20210601
  Receipt Date: 20210825
  Transmission Date: 20211014
  Serious: Yes (Hospitalization)
  Sender: FDA-Public Use
  Company Number: FR-ROCHE-2836625

PATIENT
  Age: 39 Year
  Sex: Female

DRUGS (8)
  1. RITUXIMAB. [Suspect]
     Active Substance: RITUXIMAB
     Indication: DELAYED HAEMOLYTIC TRANSFUSION REACTION
     Dosage: ON DAYS 1, 4, 8, AND 12.
     Route: 041
  2. FERRIC HYDROXIDE [Suspect]
     Active Substance: FERRIC HYDROXIDE
     Indication: DELAYED HAEMOLYTIC TRANSFUSION REACTION
     Route: 065
  3. DARBEPOETIN ALFA [Suspect]
     Active Substance: DARBEPOETIN ALFA
     Indication: DELAYED HAEMOLYTIC TRANSFUSION REACTION
     Route: 065
  4. METHOXY POLYETHYLENE GLYCOL?EPOETIN BETA. [Suspect]
     Active Substance: METHOXY POLYETHYLENE GLYCOL-EPOETIN BETA
     Indication: DELAYED HAEMOLYTIC TRANSFUSION REACTION
     Dosage: FOR 4 DAYS
     Route: 065
  5. ECULIZUMAB [Suspect]
     Active Substance: ECULIZUMAB
     Indication: DELAYED HAEMOLYTIC TRANSFUSION REACTION
     Dosage: ON DAYS 1 AND 7
     Route: 042
  6. FOLIC ACID. [Suspect]
     Active Substance: FOLIC ACID
     Indication: DELAYED HAEMOLYTIC TRANSFUSION REACTION
     Route: 065
  7. EPOETIN ALFA [Suspect]
     Active Substance: ERYTHROPOIETIN
     Indication: DELAYED HAEMOLYTIC TRANSFUSION REACTION
     Dosage: 50 UI/KG
     Route: 065
  8. METHYLPREDNISOLONE. [Suspect]
     Active Substance: METHYLPREDNISOLONE
     Indication: DELAYED HAEMOLYTIC TRANSFUSION REACTION
     Route: 065

REACTIONS (4)
  - Pyelonephritis [Recovered/Resolved]
  - Maternal exposure during pregnancy [Unknown]
  - Off label use [Unknown]
  - Premature delivery [Unknown]
